FAERS Safety Report 9434390 (Version 3)
Quarter: 2013Q4

REPORT INFORMATION
  Report Type: Spontaneous
  Country: MA (occurrence: MA)
  Receive Date: 20130801
  Receipt Date: 20131030
  Transmission Date: 20140711
  Serious: Yes (Hospitalization)
  Sender: FDA-Public Use
  Company Number: MA-JNJFOC-20130716221

PATIENT
  Age: 56 Year
  Sex: Female
  Weight: 80 kg

DRUGS (1)
  1. REMICADE [Suspect]
     Indication: ANKYLOSING SPONDYLITIS
     Dosage: 400 MG PER COURSE
     Route: 042

REACTIONS (1)
  - Tuberculous pleurisy [Recovering/Resolving]
